FAERS Safety Report 6951872-8 (Version None)
Quarter: 2010Q3

REPORT INFORMATION
  Report Type: 
  Country: None (occurrence: None)
  Receive Date: 20100829
  Receipt Date: 20100413
  Transmission Date: 20110219
  Serious: No
  Sender: FDA-Public Use
  Company Number: US-ABBOTT-10P-163-0639251-00

PATIENT
  Sex: Male
  Weight: 108.05 kg

DRUGS (2)
  1. NIASPAN [Suspect]
     Indication: HIGH DENSITY LIPOPROTEIN DECREASED
     Dates: start: 20100301, end: 20100401
  2. LASIX [Concomitant]
     Indication: DIURETIC THERAPY

REACTIONS (1)
  - OEDEMA PERIPHERAL [None]
